FAERS Safety Report 4401694-7 (Version None)
Quarter: 2004Q3

REPORT INFORMATION
  Report Type: 
  Country: None (occurrence: None)
  Receive Date: 20040714
  Receipt Date: 20040628
  Transmission Date: 20050211
  Serious: Yes (Death)
  Sender: FDA-Public Use
  Company Number: USA-2004-0015870

PATIENT
  Age: 82 Year
  Sex: Female

DRUGS (2)
  1. OXYCONTIN [Suspect]
     Indication: PAIN
     Dosage: 60 MG, Q 12H
     Dates: start: 20030827
  2. ACETAMINOPHEN AND HYDROCODONE BITARTRATE [Concomitant]

REACTIONS (3)
  - CARCINOMA [None]
  - CONDITION AGGRAVATED [None]
  - MALIGNANT NEOPLASM PROGRESSION [None]
